FAERS Safety Report 24525966 (Version 1)
Quarter: 2024Q4

REPORT INFORMATION
  Report Type: Spontaneous
  Country: US (occurrence: US)
  Receive Date: 20241020
  Receipt Date: 20241020
  Transmission Date: 20250115
  Serious: No
  Sender: NOVARTIS
  Company Number: US-002147023-NVSC2024US201129

PATIENT
  Sex: Female

DRUGS (1)
  1. KESIMPTA [Suspect]
     Active Substance: OFATUMUMAB
     Indication: Multiple sclerosis
     Dosage: UNK
     Route: 065

REACTIONS (6)
  - Nausea [Unknown]
  - Quality of life decreased [Unknown]
  - Pain [Unknown]
  - Post-traumatic stress disorder [Unknown]
  - Central nervous system lesion [Unknown]
  - Condition aggravated [Unknown]
